FAERS Safety Report 8194309-6 (Version None)
Quarter: 2012Q1

REPORT INFORMATION
  Report Type: 
  Country: None (occurrence: None)
  Receive Date: 20120308
  Receipt Date: 20120305
  Transmission Date: 20120608
  Serious: No
  Sender: FDA-Public Use
  Company Number: US-PFIZER INC-2012059020

PATIENT
  Sex: Male
  Weight: 86.621 kg

DRUGS (7)
  1. BENADRYL [Concomitant]
     Indication: HYPERSENSITIVITY
  2. BENADRYL [Concomitant]
     Indication: HEADACHE
     Dosage: UNK
  3. CARVEDILOL [Concomitant]
     Dosage: 6.25 MG, 2X/DAY
  4. LISINOPRIL [Concomitant]
     Dosage: 20 MG, 1X/DAY
  5. KLOR-CON [Concomitant]
     Dosage: 20 MEQ, 2X/DAY
  6. TIKOSYN [Suspect]
     Indication: ATRIAL FIBRILLATION
     Dosage: 500 UG, 2X/DAY
     Route: 048
     Dates: start: 20110101
  7. FUROSEMIDE [Concomitant]
     Dosage: 40 MG, 1X/DAY

REACTIONS (2)
  - FAECES DISCOLOURED [None]
  - CONSTIPATION [None]
